FAERS Safety Report 5607803-6 (Version None)
Quarter: 2008Q1

REPORT INFORMATION
  Report Type: 
  Country: None (occurrence: None)
  Receive Date: 20080125
  Receipt Date: 20080111
  Transmission Date: 20080703
  Serious: Yes (Hospitalization)
  Sender: FDA-Public Use
  Company Number: TNZFR200800006

PATIENT
  Age: 39 Year
  Sex: Female

DRUGS (5)
  1. INNOHEP [Suspect]
     Indication: DEEP VEIN THROMBOSIS
     Dosage: (DAILY), SUBCUTANEOUS
     Route: 058
     Dates: start: 20071204, end: 20071215
  2. PREVISCAN (FLUINDIONE) [Suspect]
     Dosage: ORAL
     Route: 048
     Dates: start: 20071204, end: 20071215
  3. NEXIUM [Suspect]
     Dosage: ORAL
     Route: 048
     Dates: end: 20071215
  4. PREDNISONE [Concomitant]
  5. AZATHIOPRINE SODIUM [Concomitant]

REACTIONS (1)
  - HEPATITIS [None]
